FAERS Safety Report 10037672 (Version 1)
Quarter: 2014Q1

REPORT INFORMATION
  Report Type: Spontaneous
  Country: US (occurrence: US)
  Receive Date: 20140326
  Receipt Date: 20140326
  Transmission Date: 20141002
  Serious: No
  Sender: FDA-Public Use
  Company Number: US-PFIZER INC-2014085561

PATIENT
  Age: 13 Year
  Sex: Male
  Weight: 49.89 kg

DRUGS (1)
  1. GENOTROPIN [Suspect]
     Dosage: 1.5 MG, UNK
     Dates: start: 201403

REACTIONS (1)
  - Injection site pain [Unknown]
